FAERS Safety Report 17458632 (Version 1)
Quarter: 2020Q1

REPORT INFORMATION
  Report Type: Spontaneous
  Country: US (occurrence: US)
  Receive Date: 20190919
  Receipt Date: 20190919
  Transmission Date: 20200409
  Serious: Yes (Hospitalization)
  Sender: FDA-Public Use
  Company Number: None

PATIENT
  Age: 34 Year
  Sex: Female

DRUGS (8)
  1. MULTIVITAMIN [Concomitant]
     Active Substance: VITAMINS
  2. BUPROPION XL [Concomitant]
     Active Substance: BUPROPION
  3. QUETIAPINE. [Concomitant]
     Active Substance: QUETIAPINE
  4. PRAZOSIN. [Concomitant]
     Active Substance: PRAZOSIN
  5. ESCITALOPRAM [Concomitant]
     Active Substance: ESCITALOPRAM OXALATE
  6. DANK THC CARTRIDGE FLAVOR: BIRTHDAY CAKE [Suspect]
     Active Substance: .DELTA.8-TETRAHYDROCANNABINOL\DEVICE\HERBALS
  7. SUDAFED [Concomitant]
     Active Substance: PSEUDOEPHEDRINE HYDROCHLORIDE
  8. CETIRIZINE [Concomitant]
     Active Substance: CETIRIZINE HYDROCHLORIDE

REACTIONS (8)
  - Hyperhidrosis [None]
  - Product container seal issue [None]
  - Chest discomfort [None]
  - Cough [None]
  - Pyrexia [None]
  - Dyspnoea [None]
  - Respiratory failure [None]
  - Administration site reaction [None]
